FAERS Safety Report 23582123 (Version 1)
Quarter: 2024Q1

REPORT INFORMATION
  Report Type: Spontaneous
  Country: US (occurrence: US)
  Receive Date: 20240229
  Receipt Date: 20240229
  Transmission Date: 20240410
  Serious: No
  Sender: FDA-Public Use
  Company Number: US-SA-SAC20240223001093

PATIENT
  Sex: Male

DRUGS (2)
  1. DUPIXENT [Suspect]
     Active Substance: DUPILUMAB
     Indication: Eczema
     Dosage: 600MG; 1X
     Route: 058
     Dates: start: 2016, end: 2016
  2. DUPIXENT [Suspect]
     Active Substance: DUPILUMAB
     Dosage: 300MG; EVERY 14 DAYS
     Route: 058

REACTIONS (1)
  - Eyelid margin crusting [Unknown]

NARRATIVE: CASE EVENT DATE: 20220101
